FAERS Safety Report 9701792 (Version 1)
Quarter: 2013Q4

REPORT INFORMATION
  Report Type: Spontaneous
  Country: US (occurrence: US)
  Receive Date: 20131121
  Receipt Date: 20131121
  Transmission Date: 20140711
  Serious: No
  Sender: FDA-Public Use
  Company Number: US-009507513-1311USA001423

PATIENT
  Sex: Female

DRUGS (2)
  1. COZAAR [Suspect]
     Route: 048
  2. CLONIDINE [Concomitant]

REACTIONS (3)
  - Dysphonia [Unknown]
  - Migraine [Unknown]
  - Dizziness [Unknown]
